FAERS Safety Report 19010958 (Version 1)
Quarter: 2021Q1

REPORT INFORMATION
  Report Type: Spontaneous
  Country: US (occurrence: US)
  Receive Date: 20210315
  Receipt Date: 20210315
  Transmission Date: 20210420
  Serious: No
  Sender: FDA-Public Use
  Company Number: None

PATIENT
  Age: 61 Year
  Sex: Female
  Weight: 65.25 kg

DRUGS (1)
  1. YUVAFEM [Suspect]
     Active Substance: ESTRADIOL HEMIHYDRATE
     Indication: ATROPHIC VULVOVAGINITIS
     Dosage: ?          QUANTITY:8 SUPPOSITORY(IES);OTHER FREQUENCY:TWICE WEEKLY;?
     Route: 067
     Dates: start: 20210301, end: 20210311

REACTIONS (5)
  - Product odour abnormal [None]
  - Vaginal discharge [None]
  - Vulvovaginal pruritus [None]
  - Manufacturing production issue [None]
  - Vaginal infection [None]

NARRATIVE: CASE EVENT DATE: 20210301
